FAERS Safety Report 20053347 (Version 2)
Quarter: 2021Q4

REPORT INFORMATION
  Report Type: Spontaneous
  Country: US (occurrence: US)
  Receive Date: 20211110
  Receipt Date: 20211223
  Transmission Date: 20220303
  Serious: Yes (Other)
  Sender: FDA-Public Use
  Company Number: US-PFIZER INC-202101496907

PATIENT
  Age: 45 Year
  Sex: Female

DRUGS (2)
  1. LATANOPROST [Suspect]
     Active Substance: LATANOPROST
     Dosage: 1 DROP
     Route: 061
  2. LATANOPROST [Suspect]
     Active Substance: LATANOPROST
     Dosage: 1 DROP
     Route: 061

REACTIONS (4)
  - Blindness [Unknown]
  - Glaucoma [Unknown]
  - Poor quality product administered [Unknown]
  - Product packaging quantity issue [Unknown]
